FAERS Safety Report 5402510-7 (Version None)
Quarter: 2007Q3

REPORT INFORMATION
  Report Type: 
  Country: None (occurrence: None)
  Receive Date: 20070801
  Receipt Date: 20060921
  Transmission Date: 20080115
  Serious: No
  Sender: FDA-Public Use
  Company Number: A0619555A

PATIENT
  Age: 77 Year
  Sex: Female

DRUGS (5)
  1. IMITREX [Suspect]
     Indication: MIGRAINE
     Dosage: 50MG AS REQUIRED
     Route: 048
     Dates: start: 20060901
  2. PREMARIN [Concomitant]
  3. ASPIRIN [Concomitant]
  4. TRIAMTERENE [Concomitant]
  5. XANAX [Concomitant]

REACTIONS (2)
  - DIZZINESS [None]
  - NAUSEA [None]
